APPROVED DRUG PRODUCT: LANREOTIDE ACETATE
Active Ingredient: LANREOTIDE ACETATE
Strength: EQ 90MG BASE/0.3ML (EQ 90MG BASE/0.3ML)
Dosage Form/Route: SOLUTION;SUBCUTANEOUS
Application: A217193 | Product #002 | TE Code: AB
Applicant: INVAGEN PHARMACEUTICALS INC
Approved: May 21, 2024 | RLD: No | RS: No | Type: RX